FAERS Safety Report 4533416-3 (Version None)
Quarter: 2004Q4

REPORT INFORMATION
  Report Type: 
  Country: None (occurrence: None)
  Receive Date: 20041221
  Receipt Date: 20041208
  Transmission Date: 20050328
  Serious: Yes (Hospitalization)
  Sender: FDA-Public Use
  Company Number: JP-ROCHE-388491

PATIENT
  Age: 72 Year
  Sex: Female

DRUGS (11)
  1. DENOSINE IV [Suspect]
     Indication: CYTOMEGALOVIRUS INFECTION
     Route: 041
     Dates: start: 20041119, end: 20041129
  2. TOBRACIN [Suspect]
     Indication: INFECTION
     Route: 042
     Dates: start: 20041111, end: 20041202
  3. COTRIM [Concomitant]
     Route: 048
     Dates: start: 20041025
  4. MODACIN [Concomitant]
     Indication: PNEUMONIA
     Route: 042
     Dates: start: 20041105
  5. STEROID NOS [Concomitant]
     Dates: start: 20041020
  6. IMMUNOSUPPRESSANT [Concomitant]
     Dates: start: 20041020, end: 20041023
  7. PLATELETS [Concomitant]
     Route: 042
     Dates: start: 20041122, end: 20041122
  8. BLOOD, PACKED RED CELLS [Concomitant]
     Route: 042
     Dates: start: 20041122, end: 20041122
  9. LOCAL ANAESTHETICS [Concomitant]
     Dates: start: 20041122, end: 20041122
  10. ALKYLATING AGENTS [Concomitant]
  11. UNKNOWN DRUG [Concomitant]
     Dosage: DRUG REPORTED AS ADRENAL HORMONE PREPARATION.

REACTIONS (4)
  - COMA [None]
  - CYTOMEGALOVIRUS ANTIGEN POSITIVE [None]
  - DRUG LEVEL INCREASED [None]
  - TRACHEOSTOMY [None]
